FAERS Safety Report 14852532 (Version 1)
Quarter: 2018Q2

REPORT INFORMATION
  Report Type: Spontaneous
  Country: US (occurrence: US)
  Receive Date: 20180507
  Receipt Date: 20180507
  Transmission Date: 20180711
  Serious: Yes (Other)
  Sender: FDA-Public Use
  Company Number: US-DRREDDYS-USA/USA/18/0098535

PATIENT
  Age: 45 Year
  Sex: Female

DRUGS (1)
  1. SUMATRIPTAN SUCCINATE TABLETS [Suspect]
     Active Substance: SUMATRIPTAN SUCCINATE
     Indication: JOINT DISLOCATION
     Dosage: INTERMITTENT
     Route: 065

REACTIONS (1)
  - Renal infarct [Unknown]
